FAERS Safety Report 10526575 (Version 1)
Quarter: 2014Q4

REPORT INFORMATION
  Report Type: Spontaneous
  Country: US (occurrence: None)
  Receive Date: 20141015
  Receipt Date: 20141015
  Transmission Date: 20150528
  Serious: No
  Sender: FDA-Public Use
  Company Number: None

PATIENT
  Age: 53 Year
  Sex: Female
  Weight: 61.24 kg

DRUGS (1)
  1. 12 HOUR NASAL DECONGESTANT [Suspect]
     Active Substance: PSEUDOEPHEDRINE HYDROCHLORIDE
     Indication: NASOPHARYNGITIS
     Dosage: 1 PILL Q12H ONCE DAILY TAKEN BY MOUTH
     Route: 048
     Dates: start: 20141011, end: 20141013

REACTIONS (4)
  - Dizziness [None]
  - Nausea [None]
  - Diplopia [None]
  - Vomiting [None]

NARRATIVE: CASE EVENT DATE: 20141013
